FAERS Safety Report 19001650 (Version 1)
Quarter: 2021Q1

REPORT INFORMATION
  Report Type: Spontaneous
  Country: US (occurrence: US)
  Receive Date: 20210311
  Receipt Date: 20210311
  Transmission Date: 20210420
  Serious: Yes (Hospitalization)
  Sender: FDA-Public Use
  Company Number: None

PATIENT
  Sex: Female

DRUGS (1)
  1. OCTREOTIDE 500MCG/ML SDV 1ML [Suspect]
     Active Substance: OCTREOTIDE
     Indication: LACTESCENT SERUM
     Dosage: ?          OTHER STRENGTH:500MCG/ML;?
     Route: 058
     Dates: start: 20210120

REACTIONS (1)
  - Off label use [None]
